FAERS Safety Report 7023227-1 (Version None)
Quarter: 2010Q3

REPORT INFORMATION
  Report Type: 
  Country: None (occurrence: None)
  Receive Date: 20100930
  Receipt Date: 20100920
  Transmission Date: 20110219
  Serious: Yes (Other)
  Sender: FDA-Public Use
  Company Number: US-PFIZER INC-2010117470

PATIENT
  Sex: Male
  Weight: 75 kg

DRUGS (3)
  1. CHANTIX [Suspect]
     Indication: SMOKING CESSATION THERAPY
     Dosage: UNK
  2. CHANTIX [Suspect]
     Dosage: 0.5 MG, DAILY
     Route: 048
     Dates: start: 20100914
  3. TEMAZEPAM [Concomitant]
     Indication: SLEEP DISORDER

REACTIONS (4)
  - ANXIETY [None]
  - DEPRESSION [None]
  - NERVOUSNESS [None]
  - WITHDRAWAL SYNDROME [None]
